FAERS Safety Report 21336218 (Version 6)
Quarter: 2022Q4

REPORT INFORMATION
  Report Type: Spontaneous
  Country: CA (occurrence: CA)
  Receive Date: 20220915
  Receipt Date: 20221126
  Transmission Date: 20230113
  Serious: Yes (Other)
  Sender: FDA-Public Use
  Company Number: CA-CELLTRION INC.-2022CA011478

PATIENT

DRUGS (6)
  1. INFLECTRA [Suspect]
     Active Substance: INFLIXIMAB-DYYB
     Indication: Pyoderma gangrenosum
     Dosage: 1 DF, UNKNOWN DOSE AT HOSPITAL
     Route: 042
     Dates: start: 20220606, end: 20220606
  2. INFLECTRA [Suspect]
     Active Substance: INFLIXIMAB-DYYB
     Indication: Crohn^s disease
     Dosage: 400 MG, WEEK 0 DOSE
     Route: 042
     Dates: start: 20220627, end: 20220627
  3. INFLECTRA [Suspect]
     Active Substance: INFLIXIMAB-DYYB
     Dosage: 400 MG WEEK 2
     Route: 042
     Dates: start: 20220627, end: 20220627
  4. INFLECTRA [Suspect]
     Active Substance: INFLIXIMAB-DYYB
     Dosage: 800 MG 6
     Route: 042
     Dates: start: 20220704
  5. INFLECTRA [Suspect]
     Active Substance: INFLIXIMAB-DYYB
     Dosage: 800 MG, WEEK 2, 6, THEN EVERY 8 WEEKS-DISCONTINUED
     Route: 042
     Dates: start: 20220704, end: 20221021
  6. INFLECTRA [Suspect]
     Active Substance: INFLIXIMAB-DYYB
     Dosage: 800 MG, WEEK 2, 6, THEN EVERY 8 WEEKS
     Route: 042
     Dates: start: 20221021

REACTIONS (4)
  - Ileostomy [Unknown]
  - Therapy non-responder [Unknown]
  - Off label use [Unknown]
  - Infusion related reaction [Unknown]

NARRATIVE: CASE EVENT DATE: 20220101
